FAERS Safety Report 25711785 (Version 2)
Quarter: 2025Q3

REPORT INFORMATION
  Report Type: Report from Study
  Country: US (occurrence: US)
  Receive Date: 20250821
  Receipt Date: 20250903
  Transmission Date: 20251020
  Serious: Yes (Hospitalization, Other)
  Sender: AURINIA PHARMACEUTICALS
  Company Number: US-MMM-MK9OQACU

PATIENT
  Sex: Male

DRUGS (3)
  1. LUPKYNIS [Suspect]
     Active Substance: VOCLOSPORIN
     Indication: Lupus nephritis
     Dosage: 7.9 MILLIGRAM, BID
     Route: 048
     Dates: start: 20211214
  2. LUPKYNIS [Suspect]
     Active Substance: VOCLOSPORIN
     Dosage: 7.9 MILLIGRAM, BID
     Route: 048
     Dates: start: 20211214
  3. COLCHICINE [Suspect]
     Active Substance: COLCHICINE
     Indication: Product used for unknown indication

REACTIONS (5)
  - Pneumonia [Recovered/Resolved]
  - Dyspnoea [Not Recovered/Not Resolved]
  - Hip fracture [Not Recovered/Not Resolved]
  - Vomiting [Unknown]
  - Drug interaction [Unknown]
